FAERS Safety Report 26179527 (Version 1)
Quarter: 2025Q4

REPORT INFORMATION
  Report Type: Spontaneous
  Country: US (occurrence: US)
  Receive Date: 20251219
  Receipt Date: 20251219
  Transmission Date: 20260118
  Serious: Yes (Other)
  Sender: MYLAN
  Company Number: US-MYLANLABS-2025M1107400

PATIENT
  Age: 32 Year
  Sex: Female

DRUGS (4)
  1. TACROLIMUS [Suspect]
     Active Substance: TACROLIMUS
     Indication: Focal segmental glomerulosclerosis
     Dosage: UNK
  2. ENALAPRIL [Suspect]
     Active Substance: ENALAPRIL
     Indication: Proteinuria
     Dosage: UNK
  3. ENALAPRIL [Suspect]
     Active Substance: ENALAPRIL
     Indication: Focal segmental glomerulosclerosis
     Dosage: UNK, DOSE INCREASING OF ENALAPRIL WAS LIMITED
  4. ENALAPRIL [Suspect]
     Active Substance: ENALAPRIL
     Dosage: UNK, REINITIATED

REACTIONS (5)
  - Drug ineffective for unapproved indication [Unknown]
  - Product prescribing issue [Unknown]
  - Maternal exposure during pregnancy [Recovered/Resolved]
  - Normal newborn [Recovered/Resolved]
  - Maternal exposure during breast feeding [Unknown]
